FAERS Safety Report 9426423 (Version 1)
Quarter: 2013Q3

REPORT INFORMATION
  Report Type: Spontaneous
  Country: US (occurrence: None)
  Receive Date: 20130729
  Receipt Date: 20130729
  Transmission Date: 20140515
  Serious: No
  Sender: FDA-Public Use
  Company Number: None

PATIENT
  Age: 70 Year
  Sex: Male

DRUGS (1)
  1. VISMODEGIB [Suspect]
     Dates: start: 20121013, end: 20121105

REACTIONS (2)
  - Nausea [None]
  - Vomiting [None]
